FAERS Safety Report 14933787 (Version 1)
Quarter: 2018Q2

REPORT INFORMATION
  Report Type: Spontaneous
  Country: US (occurrence: US)
  Receive Date: 20180524
  Receipt Date: 20180524
  Transmission Date: 20180711
  Serious: Yes (Other)
  Sender: FDA-Public Use
  Company Number: US-BAYER-2018-095745

PATIENT
  Age: 26 Year
  Sex: Male

DRUGS (1)
  1. KOGENATE FS [Suspect]
     Active Substance: ANTIHEMOPHILIC FACTOR, HUMAN RECOMBINANT
     Indication: FACTOR VIII DEFICIENCY
     Dosage: 2552 U, TIW AND EVERY 24HS PRN
     Route: 042
     Dates: start: 20120822

REACTIONS (2)
  - Haemorrhage [None]
  - Haemarthrosis [None]

NARRATIVE: CASE EVENT DATE: 20180515
